FAERS Safety Report 7946385-0 (Version None)
Quarter: 2011Q4

REPORT INFORMATION
  Report Type: 
  Country: None (occurrence: None)
  Receive Date: 20111129
  Receipt Date: 20111118
  Transmission Date: 20120403
  Serious: Yes (Death)
  Sender: FDA-Public Use
  Company Number: US-MERCK-1111USA03127

PATIENT

DRUGS (1)
  1. MECTIZAN [Suspect]
     Indication: ONCHOCERCIASIS
     Route: 048

REACTIONS (2)
  - NERVOUS SYSTEM DISORDER [None]
  - CEREBRAL ARTERY EMBOLISM [None]
